FAERS Safety Report 7272288-3 (Version None)
Quarter: 2011Q1

REPORT INFORMATION
  Report Type: 
  Country: None (occurrence: None)
  Receive Date: 20110203
  Receipt Date: 20110124
  Transmission Date: 20110831
  Serious: Yes (Other)
  Sender: FDA-Public Use
  Company Number: PHHY2011US06358

PATIENT
  Sex: Female

DRUGS (2)
  1. RADIATION THERAPY [Suspect]
     Dosage: UNK
     Dates: start: 20100501, end: 20100701
  2. FEMARA [Suspect]
     Indication: NEOPLASM MALIGNANT
     Dosage: 2.5 MG
     Route: 048
     Dates: start: 20100501

REACTIONS (1)
  - RADIATION PNEUMONITIS [None]
